FAERS Safety Report 4657075-4 (Version None)
Quarter: 2005Q2

REPORT INFORMATION
  Report Type: 
  Country: None (occurrence: None)
  Receive Date: 20050506
  Receipt Date: 20050422
  Transmission Date: 20051028
  Serious: Yes (Death, Hospitalization)
  Sender: FDA-Public Use
  Company Number: 207016

PATIENT
  Age: 57 Year
  Sex: Female

DRUGS (7)
  1. AVONEX [Suspect]
     Indication: MULTIPLE SCLEROSIS
     Dosage: 30 UG; QW; IM
     Route: 030
     Dates: start: 20020412, end: 20030801
  2. AVONEX [Suspect]
     Indication: MULTIPLE SCLEROSIS
     Dosage: 30 UG; QW; IM
     Route: 030
     Dates: start: 20030902, end: 20050201
  3. LIPITOR [Concomitant]
  4. MARINOL [Concomitant]
  5. DARVOCET [Concomitant]
  6. POTASSIUM CHLORIDE [Concomitant]
  7. LASIX [Concomitant]

REACTIONS (5)
  - LUNG NEOPLASM [None]
  - MALIGNANT PLEURAL EFFUSION [None]
  - METASTASES TO LIVER [None]
  - METASTASES TO LUNG [None]
  - RENAL CELL CARCINOMA STAGE UNSPECIFIED [None]
